FAERS Safety Report 11847729 (Version 2)
Quarter: 2016Q1

REPORT INFORMATION
  Report Type: Spontaneous
  Country: US (occurrence: US)
  Receive Date: 20151217
  Receipt Date: 20160111
  Transmission Date: 20160526
  Serious: No
  Sender: FDA-Public Use
  Company Number: US-GLAXOSMITHKLINE-US2015GSK176778

PATIENT
  Age: 39 Year
  Sex: Female
  Weight: 61.22 kg

DRUGS (8)
  1. LORAZEPAM. [Concomitant]
     Active Substance: LORAZEPAM
  2. BENLYSTA [Suspect]
     Active Substance: BELIMUMAB
     Indication: SYSTEMIC LUPUS ERYTHEMATOSUS
     Dosage: 600 MG (10MG/KG) IN 250 ML NS INFUSED OVER 1 HOUR
     Route: 042
     Dates: start: 20151111
  3. FLUCONAZOLE. [Concomitant]
     Active Substance: FLUCONAZOLE
  4. CHANTIX [Concomitant]
     Active Substance: VARENICLINE TARTRATE
  5. HYDROCODONE/ACETAMINOPHEN [Concomitant]
     Active Substance: ACETAMINOPHEN\HYDROCODONE
  6. METHOTREXATE [Concomitant]
     Active Substance: METHOTREXATE
  7. HYDROXYCHLOROQUINE SULFATE. [Concomitant]
     Active Substance: HYDROXYCHLOROQUINE SULFATE
  8. PREDNISONE. [Concomitant]
     Active Substance: PREDNISONE

REACTIONS (6)
  - Autoscopy [Unknown]
  - Erythema [Unknown]
  - Myalgia [Recovered/Resolved]
  - Back pain [Recovered/Resolved]
  - Feeling abnormal [Unknown]
  - Headache [Not Recovered/Not Resolved]

NARRATIVE: CASE EVENT DATE: 20151111
